FAERS Safety Report 9741565 (Version 2)
Quarter: 2014Q1

REPORT INFORMATION
  Report Type: Spontaneous
  Country: DE (occurrence: DE)
  Receive Date: 20131210
  Receipt Date: 20140103
  Transmission Date: 20141002
  Serious: Yes (Other)
  Sender: FDA-Public Use
  Company Number: DE-ROCHE-1314135

PATIENT
  Age: 65 Year
  Sex: Male

DRUGS (1)
  1. ROFERON-A [Suspect]
     Indication: MALIGNANT MELANOMA
     Dosage: DOSE: 3MIO IU
     Route: 058
     Dates: start: 20120904

REACTIONS (1)
  - Monoclonal gammopathy [Unknown]
